FAERS Safety Report 10973431 (Version 1)
Quarter: 2015Q2

REPORT INFORMATION
  Report Type: Spontaneous
  Country: CN (occurrence: CN)
  Receive Date: 20150401
  Receipt Date: 20150401
  Transmission Date: 20150821
  Serious: Yes (Other)
  Sender: FDA-Public Use
  Company Number: CN-CIPLA LTD.-2015CN02662

PATIENT

DRUGS (1)
  1. FINASTERIDE. [Suspect]
     Active Substance: FINASTERIDE
     Dosage: 5 MG, ON DAY 1
     Route: 048

REACTIONS (2)
  - Hypersensitivity [Recovered/Resolved]
  - Electrocardiogram abnormal [Recovered/Resolved]
